FAERS Safety Report 14198861 (Version 1)
Quarter: 2017Q4

REPORT INFORMATION
  Report Type: Spontaneous
  Country: US (occurrence: US)
  Receive Date: 20171117
  Receipt Date: 20171117
  Transmission Date: 20180321
  Serious: No
  Sender: FDA-Public Use
  Company Number: US-PFIZER INC-2017493351

PATIENT
  Age: 68 Year
  Sex: Female
  Weight: 98.41 kg

DRUGS (1)
  1. BOSULIF [Suspect]
     Active Substance: BOSUTINIB MONOHYDRATE
     Indication: CHRONIC MYELOID LEUKAEMIA
     Dosage: 300 MG, DAILY (THREE 100MG TABLETS DAILY))
     Route: 048
     Dates: start: 201606

REACTIONS (1)
  - Dyspnoea [Unknown]
